FAERS Safety Report 9290666 (Version 2)
Quarter: 2013Q3

REPORT INFORMATION
  Report Type: Report from Study
  Country: DE (occurrence: DE)
  Receive Date: 20130515
  Receipt Date: 20130816
  Transmission Date: 20140515
  Serious: Yes (Other)
  Sender: FDA-Public Use
  Company Number: DE-ROCHE-1223863

PATIENT
  Sex: Male

DRUGS (1)
  1. RITUXIMAB [Suspect]
     Indication: PEMPHIGUS
     Route: 065
     Dates: start: 20071218, end: 20080105

REACTIONS (1)
  - Oesophageal carcinoma recurrent [Unknown]
